FAERS Safety Report 8161974-9 (Version None)
Quarter: 2012Q1

REPORT INFORMATION
  Report Type: 
  Country: None (occurrence: None)
  Receive Date: 20120224
  Receipt Date: 20120217
  Transmission Date: 20120608
  Serious: Yes (Congenital Anomaly, Other)
  Sender: FDA-Public Use
  Company Number: US-PFIZER INC-2011311360

PATIENT
  Sex: Female
  Weight: 3.602 kg

DRUGS (12)
  1. ZOLOFT [Suspect]
     Indication: DEPRESSION
     Dosage: 50 MG, 1X/DAY
     Route: 064
     Dates: start: 19980226
  2. IRON SULFATETHIAMIN COMPOUND TAB [Concomitant]
     Indication: ANAEMIA
     Dosage: 325 MG, UNK
     Route: 064
     Dates: start: 20010213
  3. SOLU-MEDROL [Concomitant]
     Dosage: UNK
     Route: 064
     Dates: start: 20010118
  4. ACETAMINOPHEN [Concomitant]
     Dosage: UNK
     Route: 064
     Dates: start: 20010118
  5. PAROMOMYCIN [Concomitant]
     Dosage: 500 MG, UNK
     Route: 064
     Dates: start: 20010213
  6. REGLAN [Concomitant]
     Dosage: UNK
     Route: 064
     Dates: start: 20010118
  7. LOMOTIL [Concomitant]
     Indication: DIARRHOEA
     Dosage: 2 MG, UNK
     Route: 064
     Dates: start: 20010213
  8. KEFZOL [Concomitant]
     Dosage: UNK
     Route: 064
     Dates: start: 20010208
  9. MULTI-VITAMINS [Concomitant]
     Dosage: UNK
     Route: 064
     Dates: start: 20010118
  10. TIGAN [Concomitant]
     Indication: NAUSEA
     Dosage: 100 MG, UNK
     Route: 064
     Dates: start: 20010213
  11. ZOLOFT [Suspect]
     Dosage: 100 MG, UNK
     Route: 064
     Dates: start: 19981006
  12. BENADRYL [Concomitant]
     Dosage: 50 MG, UNK
     Route: 064
     Dates: start: 20010118

REACTIONS (2)
  - MATERNAL EXPOSURE TIMING UNSPECIFIED [None]
  - TALIPES [None]
